FAERS Safety Report 6453334-3 (Version None)
Quarter: 2009Q4

REPORT INFORMATION
  Report Type: 
  Country: None (occurrence: None)
  Receive Date: 20091124
  Receipt Date: 20091116
  Transmission Date: 20100525
  Serious: Yes (Hospitalization)
  Sender: FDA-Public Use
  Company Number: DE-ASTRAZENECA-2009SE26948

PATIENT
  Age: 36 Year
  Sex: Female

DRUGS (8)
  1. SEROQUEL [Suspect]
     Indication: DEPRESSION
     Route: 048
     Dates: start: 20091005, end: 20091006
  2. SEROQUEL [Suspect]
     Indication: BORDERLINE PERSONALITY DISORDER
     Route: 048
     Dates: start: 20091005, end: 20091006
  3. FLUANXOL [Concomitant]
     Indication: DEPRESSION
     Route: 048
  4. FLUANXOL [Concomitant]
     Indication: BORDERLINE PERSONALITY DISORDER
     Route: 048
  5. VALDOXAN [Concomitant]
     Indication: DEPRESSION
     Route: 048
     Dates: start: 20090928
  6. VALDOXAN [Concomitant]
     Indication: BORDERLINE PERSONALITY DISORDER
     Route: 048
     Dates: start: 20090928
  7. DIAZEPAM [Concomitant]
     Indication: DEPRESSION
     Dosage: TITRATED 4-1 MG
  8. DIAZEPAM [Concomitant]
     Indication: BORDERLINE PERSONALITY DISORDER
     Dosage: TITRATED 4-1 MG

REACTIONS (1)
  - OEDEMA [None]
